FAERS Safety Report 13271943 (Version 1)
Quarter: 2017Q1

REPORT INFORMATION
  Report Type: Spontaneous
  Country: GB (occurrence: GB)
  Receive Date: 20170227
  Receipt Date: 20170227
  Transmission Date: 20170428
  Serious: Yes (Other)
  Sender: FDA-Public Use
  Company Number: GB-SUN PHARMACEUTICAL INDUSTRIES LTD-2017RR-133726

PATIENT
  Age: 63 Year
  Sex: Male
  Weight: 65 kg

DRUGS (14)
  1. CODEINE [Suspect]
     Active Substance: CODEINE
     Dosage: 60 MG, DAILY
     Route: 048
     Dates: start: 20170130, end: 20170131
  2. QUININE SULFATE. [Concomitant]
     Active Substance: QUININE SULFATE
     Indication: PRODUCT USED FOR UNKNOWN INDICATION
     Dosage: 200 MG, AT NIGHT. SUSPENDED.
     Route: 065
  3. DILZEM SR [Concomitant]
     Active Substance: DILTIAZEM
     Indication: PRODUCT USED FOR UNKNOWN INDICATION
     Dosage: 90 MG, DAILY
     Route: 065
  4. PARACETAMOL [Concomitant]
     Active Substance: ACETAMINOPHEN
     Indication: PRODUCT USED FOR UNKNOWN INDICATION
     Dosage: 1 G, FOUR TIMES A DAY.
     Route: 065
  5. CHLORPHENAMINE [Concomitant]
     Active Substance: CHLORPHENIRAMINE MALEATE
     Indication: PRODUCT USED FOR UNKNOWN INDICATION
     Dosage: 4 MG, DAILY
     Route: 065
  6. OMEPRAZOLE. [Concomitant]
     Active Substance: OMEPRAZOLE
     Indication: PRODUCT USED FOR UNKNOWN INDICATION
     Dosage: 40 MG, DAILY
     Route: 065
  7. DALTEPARIN [Concomitant]
     Active Substance: DALTEPARIN
     Indication: PRODUCT USED FOR UNKNOWN INDICATION
     Dosage: 2500 IU, DAILY, AT TEATIME.
     Route: 065
  8. CODEINE [Suspect]
     Active Substance: CODEINE
     Indication: GASTROINTESTINAL STOMA COMPLICATION
     Dosage: 30 MG, DAILY
     Route: 048
     Dates: start: 20170128, end: 20170129
  9. LOPERAMIDE [Suspect]
     Active Substance: LOPERAMIDE
     Dosage: 24 MG, DAILY
     Route: 048
     Dates: start: 20170201
  10. LEVOTHYROXINE. [Concomitant]
     Active Substance: LEVOTHYROXINE
     Indication: PRODUCT USED FOR UNKNOWN INDICATION
     Dosage: 100 ?G, DAILY, IN THE MORNING.
     Route: 065
  11. SIMVASTATIN. [Concomitant]
     Active Substance: SIMVASTATIN
     Indication: PRODUCT USED FOR UNKNOWN INDICATION
     Dosage: 20 MG, DAILY, AT NIGHT.
     Route: 065
  12. CODEINE [Suspect]
     Active Substance: CODEINE
     Dosage: 60 MG, DAILY
     Route: 048
     Dates: start: 20170201
  13. LOPERAMIDE [Suspect]
     Active Substance: LOPERAMIDE
     Indication: GASTROINTESTINAL STOMA COMPLICATION
     Dosage: 16 MG, DAILY
     Route: 048
     Dates: start: 20170128, end: 20170131
  14. AMITRIPTYLINE [Concomitant]
     Active Substance: AMITRIPTYLINE
     Indication: PRODUCT USED FOR UNKNOWN INDICATION
     Dosage: 100 MG, DAILY, AT NIGHT.
     Route: 065

REACTIONS (3)
  - Miosis [Recovered/Resolved]
  - Toxicity to various agents [Recovered/Resolved]
  - Respiratory depression [Recovered/Resolved]

NARRATIVE: CASE EVENT DATE: 20170202
